FAERS Safety Report 18543177 (Version 4)
Quarter: 2022Q2

REPORT INFORMATION
  Report Type: Report from Study
  Country: SE (occurrence: SE)
  Receive Date: 20201125
  Receipt Date: 20220520
  Transmission Date: 20220721
  Serious: Yes (Other)
  Sender: FDA-Public Use
  Company Number: SE-ABBVIE-20K-150-3660638-00

PATIENT
  Age: 71 Year
  Sex: Female
  Weight: 50.5 kg

DRUGS (5)
  1. CARBIDOPA\LEVODOPA [Suspect]
     Active Substance: CARBIDOPA\LEVODOPA
     Indication: Parkinson^s disease
     Route: 050
     Dates: start: 20190423
  2. CARBIDOPA\LEVODOPA [Suspect]
     Active Substance: CARBIDOPA\LEVODOPA
     Dosage: M.D: 2 ML, C.D DAY: 4.0 ML/H, C.D NIGHT: 2.9 ML/H, E.D: 1.0 ML. REMAINED AT 24H
     Route: 050
     Dates: start: 20201119
  3. CARBIDOPA\LEVODOPA [Suspect]
     Active Substance: CARBIDOPA\LEVODOPA
     Dosage: ED INCREASED FROM 1.3 ML TO 2.0 ML. CURRENT DOSAGE: MD: 3ML,CONTINUOUS DOSE DAY:4.1 ML/H
     Route: 050
     Dates: start: 20210527, end: 2021
  4. CARBIDOPA\LEVODOPA [Suspect]
     Active Substance: CARBIDOPA\LEVODOPA
     Dosage: CONTINUOUS DOSE 08.00-14.00 DECREASED FROM 4.0 ML/H TO 3.8ML/H
     Route: 050
     Dates: start: 20211111
  5. CARBIDOPA\LEVODOPA [Suspect]
     Active Substance: CARBIDOPA\LEVODOPA
     Dosage: CONTINUOUS DOSE 08.00-14.00 DECREASED FROM 4.0 ML/H TO 3.8ML/H
     Route: 050
     Dates: start: 20220518

REACTIONS (3)
  - Spinal stenosis [Recovered/Resolved]
  - Pain in extremity [Recovered/Resolved]
  - Excessive granulation tissue [Not Recovered/Not Resolved]
